FAERS Safety Report 23098791 (Version 1)
Quarter: 2023Q4

REPORT INFORMATION
  Report Type: Report from Study
  Country: US (occurrence: US)
  Receive Date: 20231024
  Receipt Date: 20231024
  Transmission Date: 20240110
  Serious: Yes (Other)
  Sender: FDA-Public Use
  Company Number: US-ABBVIE-5461598

PATIENT
  Sex: Male

DRUGS (1)
  1. HUMIRA [Suspect]
     Active Substance: ADALIMUMAB
     Indication: Crohn^s disease
     Dosage: FORM STRENGTH: 40 MILLIGRAM
     Route: 058
     Dates: start: 20180615

REACTIONS (6)
  - Polyp [Unknown]
  - Nausea [Not Recovered/Not Resolved]
  - Crohn^s disease [Unknown]
  - Unevaluable event [Not Recovered/Not Resolved]
  - Accident at work [Unknown]
  - Road traffic accident [Unknown]

NARRATIVE: CASE EVENT DATE: 20230101
